FAERS Safety Report 4351757-X (Version None)
Quarter: 2004Q2

REPORT INFORMATION
  Report Type: 
  Country: None (occurrence: None)
  Receive Date: 20040503
  Receipt Date: 20031029
  Transmission Date: 20050107
  Serious: Yes (Death, Other)
  Sender: FDA-Public Use
  Company Number: US-GLAXOSMITHKLINE-B0313871A

PATIENT
  Age: 43 Year
  Sex: Male

DRUGS (4)
  1. PAXIL [Suspect]
     Route: 048
  2. WELLBUTRIN [Suspect]
     Route: 048
  3. RISPERIDONE [Suspect]
     Route: 065
  4. CLONAZEPAM [Suspect]
     Route: 065

REACTIONS (8)
  - ADVERSE DRUG REACTION [None]
  - BRADYCARDIA [None]
  - CARDIAC ARREST [None]
  - DEATH [None]
  - EYE MOVEMENT DISORDER [None]
  - MENTAL IMPAIRMENT [None]
  - MUSCLE RIGIDITY [None]
  - PYREXIA [None]
